FAERS Safety Report 23878910 (Version 1)
Quarter: 2024Q2

REPORT INFORMATION
  Report Type: Spontaneous
  Country: JP (occurrence: JP)
  Receive Date: 20240521
  Receipt Date: 20240521
  Transmission Date: 20240716
  Serious: Yes (Hospitalization, Other)
  Sender: FDA-Public Use
  Company Number: JP-ELI_LILLY_AND_COMPANY-JP202402013127

PATIENT
  Age: 51 Year
  Sex: Female
  Weight: 35 kg

DRUGS (11)
  1. VERZENIO [Suspect]
     Active Substance: ABEMACICLIB
     Indication: Breast cancer stage IV
     Dosage: 300 MG
     Route: 048
     Dates: start: 20220623, end: 20220720
  2. VERZENIO [Suspect]
     Active Substance: ABEMACICLIB
     Dosage: 200 MG
     Route: 048
     Dates: start: 20220721, end: 20230201
  3. VERZENIO [Suspect]
     Active Substance: ABEMACICLIB
     Dosage: 150 MG
     Route: 048
     Dates: start: 20230202, end: 202309
  4. ANASTROZOLE [Concomitant]
     Active Substance: ANASTROZOLE
     Indication: Breast cancer stage IV
     Dosage: 1 MG, DAILY
     Route: 048
  5. ALFACALCIDOL [Concomitant]
     Active Substance: ALFACALCIDOL
     Dosage: 0.5 UG, DAILY
     Route: 048
  6. CALCIUM LACTATE [Concomitant]
     Active Substance: CALCIUM LACTATE
     Dosage: 1 G, BID
  7. MIYA-BM [Concomitant]
     Active Substance: CLOSTRIDIUM BUTYRICUM SPORES STRAIN M-55
     Dosage: 1 DOSAGE FORM, TID
     Route: 048
  8. AZILSARTAN KAMEDOXOMIL [Concomitant]
     Active Substance: AZILSARTAN KAMEDOXOMIL
     Dosage: UNK
  9. LYRICA [Concomitant]
     Active Substance: PREGABALIN
     Dosage: UNK
     Dates: start: 20201007
  10. HERBALS [Concomitant]
     Active Substance: HERBALS
     Dosage: UNK
     Dates: start: 20201007
  11. CYMBALTA [Concomitant]
     Active Substance: DULOXETINE HYDROCHLORIDE
     Dosage: UNK
     Dates: start: 20201102

REACTIONS (8)
  - Hypoglycaemia [Unknown]
  - Electrolyte imbalance [Unknown]
  - Decreased appetite [Unknown]
  - Pancytopenia [Unknown]
  - Blood creatine phosphokinase increased [Unknown]
  - COVID-19 [Unknown]
  - Lung opacity [Unknown]
  - Neutrophil count decreased [Unknown]

NARRATIVE: CASE EVENT DATE: 20230202
